FAERS Safety Report 5919456-8 (Version None)
Quarter: 2008Q4

REPORT INFORMATION
  Report Type: 
  Country: None (occurrence: None)
  Receive Date: 20081015
  Receipt Date: 20081008
  Transmission Date: 20090506
  Serious: Yes (Other)
  Sender: FDA-Public Use
  Company Number: PHEH2007US13182

PATIENT
  Sex: Male
  Weight: 64.85 kg

DRUGS (7)
  1. TRILEPTAL [Suspect]
     Indication: EPILEPSY
     Dosage: 300 MG, BID
     Route: 048
     Dates: start: 20050901, end: 20060309
  2. TRILEPTAL [Suspect]
     Dosage: UNK
  3. LAMICTAL [Suspect]
     Indication: EPILEPSY
     Dosage: 25 MG, QD
     Route: 048
     Dates: start: 20070601, end: 20070601
  4. KEPPRA [Suspect]
     Indication: EPILEPSY
     Dates: start: 20070601
  5. TOPAMAX [Concomitant]
     Dosage: 25 MG, QD
  6. ZONEGRAN [Concomitant]
     Dosage: 50 MG, QD
  7. ZONEGRAN [Concomitant]
     Dosage: 50 MG, BID

REACTIONS (15)
  - ANGER [None]
  - CATHETER PLACEMENT [None]
  - CONVULSION [None]
  - DRUG INEFFECTIVE [None]
  - GRAND MAL CONVULSION [None]
  - HEADACHE [None]
  - HYPERSENSITIVITY [None]
  - ILLITERACY [None]
  - MYOCLONUS [None]
  - PRURITUS [None]
  - RASH [None]
  - SPEECH DISORDER [None]
  - SUICIDAL IDEATION [None]
  - TONGUE BITING [None]
  - URINARY TRACT INFECTION [None]
